FAERS Safety Report 9806477 (Version 2)
Quarter: 2014Q1

REPORT INFORMATION
  Report Type: Spontaneous
  Country: RO (occurrence: RO)
  Receive Date: 20140109
  Receipt Date: 20140109
  Transmission Date: 20141002
  Serious: Yes (Congenital Anomaly)
  Sender: FDA-Public Use
  Company Number: RO-SANOFI-AVENTIS-2013SA031769

PATIENT
  Sex: Male

DRUGS (3)
  1. LANTUS [Suspect]
     Indication: FOETAL EXPOSURE DURING PREGNANCY
     Route: 064
  2. APIDRA [Suspect]
     Indication: FOETAL EXPOSURE DURING PREGNANCY
     Dosage: 10-10-5 IU /DAY
     Route: 064
     Dates: end: 201306
  3. APIDRA [Suspect]
     Indication: FOETAL EXPOSURE DURING PREGNANCY
     Dosage: DOSE: 10-10-3 IU/DAY
     Route: 064
     Dates: start: 201306

REACTIONS (2)
  - Anal atresia [Recovered/Resolved]
  - Foetal exposure during pregnancy [Unknown]
